FAERS Safety Report 10593034 (Version 1)
Quarter: 2014Q4

REPORT INFORMATION
  Report Type: Spontaneous
  Country: PH (occurrence: PH)
  Receive Date: 20141119
  Receipt Date: 20141119
  Transmission Date: 20150529
  Serious: Yes (Hospitalization, Other)
  Sender: FDA-Public Use
  Company Number: PH-SA-2014SA154855

PATIENT
  Age: 74 Year
  Sex: Female
  Weight: 121 kg

DRUGS (3)
  1. GLIMEPIRIDE. [Suspect]
     Active Substance: GLIMEPIRIDE
     Indication: DIABETES MELLITUS
     Route: 048
     Dates: start: 20141031, end: 20141103
  2. ESOMEPRAZOLE [Concomitant]
     Active Substance: ESOMEPRAZOLE
     Indication: PEPTIC ULCER
     Route: 048
     Dates: start: 20141031, end: 20141103
  3. GLIMEPIRIDE/METFORMIN [Concomitant]
     Dates: start: 20141024

REACTIONS (4)
  - Abdominal pain upper [Recovered/Resolved]
  - Haemorrhage [Recovered/Resolved]
  - Blood glucose increased [Unknown]
  - Thrombocytopenia [Unknown]

NARRATIVE: CASE EVENT DATE: 20141103
